FAERS Safety Report 8023696-4 (Version None)
Quarter: 2012Q1

REPORT INFORMATION
  Report Type: 
  Country: None (occurrence: None)
  Receive Date: 20120103
  Receipt Date: 20120103
  Transmission Date: 20120608
  Serious: No
  Sender: FDA-Public Use
  Company Number: None

PATIENT

DRUGS (2)
  1. CITALOPRAM HYDROBROMIDE [Suspect]
     Indication: DEPRESSION
     Dosage: 20MG QD PO 2 WEEKS IN NOV, 1 DAY IN DEC
     Route: 048
     Dates: start: 20111101
  2. CITALOPRAM HYDROBROMIDE [Suspect]
     Indication: DEPRESSION
     Dosage: 20MG QD PO 2 WEEKS IN NOV, 1 DAY IN DEC
     Route: 048
     Dates: start: 20111201

REACTIONS (9)
  - NAUSEA [None]
  - NASOPHARYNGITIS [None]
  - DEPRESSION [None]
  - DIZZINESS [None]
  - VOMITING [None]
  - TREMOR [None]
  - ASTHENIA [None]
  - HEADACHE [None]
  - TEARFULNESS [None]
